FAERS Safety Report 9752359 (Version 1)
Quarter: 2013Q4

REPORT INFORMATION
  Report Type: Spontaneous
  Country: US (occurrence: US)
  Receive Date: 20131213
  Receipt Date: 20131213
  Transmission Date: 20140711
  Serious: No
  Sender: FDA-Public Use
  Company Number: US-PFIZER INC-2013355757

PATIENT
  Age: 19 Year
  Sex: Female
  Weight: 64.85 kg

DRUGS (8)
  1. LYRICA [Suspect]
     Indication: FIBROMYALGIA
     Dosage: 150 MG, 3X/DAY
     Dates: start: 201306
  2. LYRICA [Interacting]
     Indication: PAIN
     Dosage: 100 MG, UNK
     Dates: start: 201311
  3. LYRICA [Interacting]
     Dosage: UNK
  4. SUBOXONE [Interacting]
     Dosage: UNK
  5. PRIMIDONE [Concomitant]
     Indication: MYOCLONIC EPILEPSY
     Dosage: 25 MG, 2X/DAY
  6. PRIMIDONE [Concomitant]
     Indication: MYOCLONUS
  7. VENLAFAXINE [Concomitant]
     Indication: DEPRESSION
     Dosage: 37.5 MG, 1X/DAY
  8. VENLAFAXINE [Concomitant]
     Indication: POST-TRAUMATIC STRESS DISORDER

REACTIONS (3)
  - Drug interaction [Unknown]
  - Somnolence [Unknown]
  - Drug ineffective [Unknown]
